FAERS Safety Report 4699711-2 (Version None)
Quarter: 2005Q2

REPORT INFORMATION
  Report Type: 
  Country: None (occurrence: None)
  Receive Date: 20050623
  Receipt Date: 20050616
  Transmission Date: 20051028
  Serious: Yes (Life-Threatening)
  Sender: FDA-Public Use
  Company Number: OMPQ-UK-0506S-0869

PATIENT
  Age: 31 Year
  Sex: Male

DRUGS (2)
  1. OMNIPAQUE 140 [Suspect]
     Indication: HAEMATURIA
     Dosage: 50 ML, SINGLE DOSE, I.V.
     Route: 042
     Dates: start: 20050606, end: 20050606
  2. OMNIPAQUE 140 [Suspect]
     Indication: RENAL COLIC
     Dosage: 50 ML, SINGLE DOSE, I.V.
     Route: 042
     Dates: start: 20050606, end: 20050606

REACTIONS (3)
  - CONVULSION [None]
  - DYSPNOEA [None]
  - LOSS OF CONSCIOUSNESS [None]
